FAERS Safety Report 24890713 (Version 5)
Quarter: 2025Q2

REPORT INFORMATION
  Report Type: Spontaneous
  Country: RU (occurrence: RU)
  Receive Date: 20250127
  Receipt Date: 20250624
  Transmission Date: 20250717
  Serious: Yes (Hospitalization, Other)
  Sender: IPSEN BIOPHARMACEUTICALS, INC.
  Company Number: RU-IPSEN Group, Research and Development-2025-01567

PATIENT
  Age: 13 Year
  Sex: Female
  Weight: 23 kg

DRUGS (2)
  1. SOHONOS [Suspect]
     Active Substance: PALOVAROTENE
     Indication: Fibrodysplasia ossificans progressiva
     Route: 048
     Dates: start: 20241228
  2. SOHONOS [Suspect]
     Active Substance: PALOVAROTENE
     Route: 048

REACTIONS (11)
  - Vomiting [Recovered/Resolved]
  - Gastric dilatation [Recovered/Resolved]
  - Gastroptosis [Recovered/Resolved]
  - Duodenal obstruction [Recovered/Resolved]
  - Cataract [Recovered/Resolved]
  - Pneumonia [Recovered/Resolved]
  - Gastritis erosive [Recovered/Resolved]
  - Dry skin [Recovered/Resolved]
  - Respiratory tract infection [Recovered/Resolved]
  - Nutritional condition abnormal [Recovered/Resolved]
  - Skin exfoliation [Recovered/Resolved]

NARRATIVE: CASE EVENT DATE: 20241201
